FAERS Safety Report 5783155-6 (Version None)
Quarter: 2008Q2

REPORT INFORMATION
  Report Type: 
  Country: None (occurrence: None)
  Receive Date: 20080624
  Receipt Date: 20080616
  Transmission Date: 20081010
  Serious: Yes (Other)
  Sender: FDA-Public Use
  Company Number: US-ASTRAZENECA-2008UW10534

PATIENT
  Age: 44 Year
  Sex: Female

DRUGS (14)
  1. PULMICORT FLEXHALER [Suspect]
     Indication: COUGH
     Route: 055
     Dates: start: 20080519, end: 20080521
  2. PULMICORT FLEXHALER [Suspect]
     Indication: ASTHMA
     Route: 055
     Dates: start: 20080519, end: 20080521
  3. FLOVENT [Suspect]
  4. PREDNISONE TAB [Suspect]
  5. XOPENEX [Concomitant]
  6. DIOVAN [Concomitant]
  7. ALLEGRA [Concomitant]
  8. SINGULAIR [Concomitant]
  9. NASONEX [Concomitant]
  10. VICODIN [Concomitant]
  11. NEXIUM [Concomitant]
  12. VERAPAMIL [Concomitant]
  13. CARISPRODAL [Concomitant]
  14. OXYBUTININ [Concomitant]

REACTIONS (1)
  - LOSS OF CONSCIOUSNESS [None]
